FAERS Safety Report 10606175 (Version 3)
Quarter: 2014Q4

REPORT INFORMATION
  Report Type: Spontaneous
  Country: US (occurrence: US)
  Receive Date: 20141125
  Receipt Date: 20141203
  Transmission Date: 20150529
  Serious: Yes (Life-Threatening, Disabling, Other)
  Sender: FDA-Public Use
  Company Number: US-MERCK-1411USA009237

PATIENT
  Sex: Male

DRUGS (4)
  1. SOVALDI [Suspect]
     Active Substance: SOFOSBUVIR
     Indication: HEPATITIS C
     Dosage: UNK
     Dates: start: 201403, end: 201404
  2. PEGINTRON [Suspect]
     Active Substance: PEGINTERFERON ALFA-2B
     Indication: HEPATITIS C
     Dosage: 120 MICROGRAM, QW
     Route: 058
     Dates: start: 20140408, end: 201406
  3. REBETOL [Suspect]
     Active Substance: RIBAVIRIN
     Indication: HEPATITIS C
     Dosage: 3 PILLS IN THE AM AND 3 PILLS IN THE PM
     Route: 048
     Dates: start: 20140408, end: 201406
  4. LISINOPRIL. [Concomitant]
     Active Substance: LISINOPRIL
     Route: 048

REACTIONS (13)
  - Suicidal ideation [Recovered/Resolved]
  - Hallucination [Recovered/Resolved]
  - Hypothyroidism [Recovered/Resolved]
  - Psychotic disorder [Recovered/Resolved]
  - Dysgeusia [Recovered/Resolved]
  - Depression [Recovered/Resolved]
  - Fatigue [Recovered/Resolved]
  - Toxicity to various agents [Recovered/Resolved]
  - Derealisation [Recovered/Resolved]
  - Spleen disorder [Recovered/Resolved]
  - Homicidal ideation [Recovered/Resolved]
  - Blood pressure increased [Recovered/Resolved]
  - Diabetes mellitus [Recovered/Resolved]

NARRATIVE: CASE EVENT DATE: 2014
